FAERS Safety Report 8370015-X (Version None)
Quarter: 2012Q2

REPORT INFORMATION
  Report Type: 
  Country: None (occurrence: None)
  Receive Date: 20120518
  Receipt Date: 20120501
  Transmission Date: 20120825
  Serious: No
  Sender: FDA-Public Use
  Company Number: US-ASTRAZENECA-2012SE28531

PATIENT
  Age: 68 Year
  Sex: Male

DRUGS (3)
  1. PULMICORT [Suspect]
     Route: 055
  2. SYMBICORT [Suspect]
     Route: 055
  3. RHINOCORT [Suspect]
     Route: 045

REACTIONS (4)
  - OFF LABEL USE [None]
  - DYSPNOEA [None]
  - ASTHMA LATE ONSET [None]
  - LARYNGITIS [None]
